FAERS Safety Report 5503422-0 (Version None)
Quarter: 2007Q4

REPORT INFORMATION
  Report Type: 
  Country: None (occurrence: None)
  Receive Date: 20071031
  Receipt Date: 20071019
  Transmission Date: 20080405
  Serious: Yes (Other)
  Sender: FDA-Public Use
  Company Number: US-PFIZER INC-2007089161

PATIENT
  Sex: Female
  Weight: 86.4 kg

DRUGS (8)
  1. LYRICA [Suspect]
     Indication: FIBROMYALGIA
  2. NEURONTIN [Suspect]
     Indication: FIBROMYALGIA
  3. XANAX [Concomitant]
  4. PROZAC [Concomitant]
  5. HYDROCODONE BITARTRATE [Concomitant]
  6. SOMA [Concomitant]
  7. ALBUTEROL [Concomitant]
     Route: 055
  8. LISINOPRIL [Concomitant]

REACTIONS (3)
  - BALANCE DISORDER [None]
  - DIZZINESS [None]
  - FALL [None]
